FAERS Safety Report 25228740 (Version 1)
Quarter: 2025Q2

REPORT INFORMATION
  Report Type: Report from Study
  Country: US (occurrence: US)
  Receive Date: 20250423
  Receipt Date: 20250423
  Transmission Date: 20250717
  Serious: Yes (Other)
  Sender: JOHNSON AND JOHNSON
  Company Number: US-JNJFOC-20250421620

PATIENT
  Age: 16 Year
  Sex: Female

DRUGS (11)
  1. SIMPONI [Suspect]
     Active Substance: GOLIMUMAB
     Indication: Osteomyelitis chronic
     Route: 058
     Dates: start: 20250114
  2. SIMPONI [Suspect]
     Active Substance: GOLIMUMAB
  3. CALCIUM [Concomitant]
     Active Substance: CALCIUM
     Indication: Product used for unknown indication
  4. INDOMETHACIN COX [Concomitant]
     Indication: Product used for unknown indication
  5. LANSOPRAZOLE CAP [Concomitant]
     Indication: Product used for unknown indication
  6. MIRALAX [Concomitant]
     Active Substance: POLYETHYLENE GLYCOL 3350
     Indication: Product used for unknown indication
  7. MULTIVITAMIN CHW CHILD [Concomitant]
     Indication: Product used for unknown indication
  8. PREDNISONE   TAB 5MG [Concomitant]
     Indication: Product used for unknown indication
  9. PROBIOTIC    CHW CHILDRNS [Concomitant]
     Indication: Product used for unknown indication
  10. ZENPEP       CAP 15000UNT [Concomitant]
     Indication: Product used for unknown indication
  11. STELARA [Concomitant]
     Active Substance: USTEKINUMAB
     Indication: Product used for unknown indication

REACTIONS (2)
  - Osteomyelitis chronic [Unknown]
  - Off label use [Unknown]
